FAERS Safety Report 4464110-5 (Version None)
Quarter: 2004Q4

REPORT INFORMATION
  Report Type: 
  Country: None (occurrence: None)
  Receive Date: 20041001
  Receipt Date: 20040921
  Transmission Date: 20050328
  Serious: Yes (Death, Hospitalization)
  Sender: FDA-Public Use
  Company Number: DE-JNJFOC-20040301185

PATIENT
  Age: 49 Year
  Sex: Male

DRUGS (8)
  1. REOPRO [Suspect]
     Indication: CORONARY ARTERY DISEASE
  2. PLAVIX [Suspect]
     Indication: CORONARY ARTERY DISEASE
     Dosage: THEN 75 MG/DAILY
  3. HEPARIN [Suspect]
     Indication: CORONARY ARTERY DISEASE
     Dosage: DOSE = UNITS
  4. ASPIRIN [Concomitant]
  5. BELOC ZOK [Concomitant]
  6. DELIX [Concomitant]
  7. ATORVASTATIN CALCIUM [Concomitant]
  8. TNKASE [Concomitant]

REACTIONS (5)
  - ARTERIAL THROMBOSIS [None]
  - CARDIAC PROCEDURE COMPLICATION [None]
  - DRUG INTERACTION [None]
  - THROMBOCYTOPENIA [None]
  - THROMBOSIS [None]
